FAERS Safety Report 5718370-0 (Version None)
Quarter: 2008Q2

REPORT INFORMATION
  Report Type: 
  Country: None (occurrence: None)
  Receive Date: 20080425
  Receipt Date: 20080415
  Transmission Date: 20081010
  Serious: Yes (Other)
  Sender: FDA-Public Use
  Company Number: DE-ELI_LILLY_AND_COMPANY-DE200804004087

PATIENT
  Sex: Female
  Weight: 58 kg

DRUGS (1)
  1. ALIMTA [Suspect]
     Indication: PANCREATIC CARCINOMA
     Route: 042
     Dates: end: 20080318

REACTIONS (4)
  - ANOREXIA [None]
  - DIARRHOEA [None]
  - GENERAL PHYSICAL HEALTH DETERIORATION [None]
  - VOMITING [None]
